FAERS Safety Report 18642702 (Version 1)
Quarter: 2020Q4

REPORT INFORMATION
  Report Type: Spontaneous
  Country: US (occurrence: US)
  Receive Date: 20201219
  Receipt Date: 20201219
  Transmission Date: 20210114
  Serious: Yes (Life-Threatening)
  Sender: FDA-Public Use
  Company Number: None

PATIENT
  Age: 41 Year
  Sex: Female
  Weight: 65.25 kg

DRUGS (6)
  1. PLAQUENIL [Concomitant]
     Active Substance: HYDROXYCHLOROQUINE SULFATE
  2. ALBUTEROL PRO AIR [Concomitant]
  3. GABAPENTIN. [Concomitant]
     Active Substance: GABAPENTIN
  4. DIAZEPAM. [Suspect]
     Active Substance: DIAZEPAM
     Indication: FIBROMYALGIA
     Dosage: ;?
     Route: 048
     Dates: start: 20170301
  5. DULOXETINE. [Concomitant]
     Active Substance: DULOXETINE
  6. BUPRORION [Concomitant]

REACTIONS (14)
  - Palpitations [None]
  - Drug dependence [None]
  - Headache [None]
  - Panic attack [None]
  - Paraesthesia [None]
  - Feeling of body temperature change [None]
  - Tremor [None]
  - Inappropriate schedule of product administration [None]
  - Agitation [None]
  - Sleep terror [None]
  - Nausea [None]
  - Myalgia [None]
  - Condition aggravated [None]
  - Muscular weakness [None]

NARRATIVE: CASE EVENT DATE: 20201216
